FAERS Safety Report 6969534-X (Version None)
Quarter: 2010Q3

REPORT INFORMATION
  Report Type: 
  Country: None (occurrence: None)
  Receive Date: 20100907
  Receipt Date: 20100907
  Transmission Date: 20110219
  Serious: No
  Sender: FDA-Public Use
  Company Number: None

PATIENT
  Age: 72 Year
  Sex: Female
  Weight: 63.5036 kg

DRUGS (1)
  1. ESTRADIOL [Suspect]
     Indication: NIGHT SWEATS
     Dosage: 0.5 MG 1 DAILY ORAL
     Route: 048
     Dates: start: 20100821, end: 20100824

REACTIONS (4)
  - DRUG INEFFECTIVE [None]
  - NIGHT SWEATS [None]
  - OESTRADIOL [None]
  - PRODUCT QUALITY ISSUE [None]
